FAERS Safety Report 19729086 (Version 1)
Quarter: 2021Q3

REPORT INFORMATION
  Report Type: Spontaneous
  Country: US (occurrence: US)
  Receive Date: 20210820
  Receipt Date: 20210820
  Transmission Date: 20211014
  Serious: No
  Sender: FDA-Public Use
  Company Number: US-JNJFOC-20210822941

PATIENT

DRUGS (1)
  1. ZYRTEC [Suspect]
     Active Substance: CETIRIZINE HYDROCHLORIDE
     Indication: MULTIPLE ALLERGIES
     Dosage: EVERYDAY FOR 5 MONTHS
     Route: 065

REACTIONS (4)
  - Pruritus [Unknown]
  - Withdrawal syndrome [Unknown]
  - Rash [Unknown]
  - Urticaria [Unknown]
